FAERS Safety Report 5240352-6 (Version None)
Quarter: 2007Q1

REPORT INFORMATION
  Report Type: 
  Country: None (occurrence: None)
  Receive Date: 20070219
  Receipt Date: 20070206
  Transmission Date: 20070707
  Serious: Yes (Other)
  Sender: FDA-Public Use
  Company Number: PHEH2007US01718

PATIENT
  Age: 50 Year
  Sex: Female

DRUGS (3)
  1. VIVELLE-DOT [Suspect]
     Indication: HORMONE REPLACEMENT THERAPY
     Dosage: 0.05 MG/DAY, TWICE WEEKLY
     Route: 062
     Dates: start: 20061101
  2. VIVELLE-DOT [Suspect]
     Dosage: 0.075 MG/DAY, TWICE WEEKLY
     Route: 062
     Dates: start: 20061201
  3. SYNTHROID [Concomitant]

REACTIONS (6)
  - CLUSTER HEADACHE [None]
  - FEELING HOT [None]
  - HYPERTHYROIDISM [None]
  - INSOMNIA [None]
  - PALPITATIONS [None]
  - TREMOR [None]
